FAERS Safety Report 20301534 (Version 7)
Quarter: 2022Q1

REPORT INFORMATION
  Report Type: Spontaneous
  Country: GB (occurrence: GB)
  Receive Date: 20220105
  Receipt Date: 20220310
  Transmission Date: 20220423
  Serious: Yes (Death, Life-Threatening, Hospitalization, Disabling, Other)
  Sender: FDA-Public Use
  Company Number: GB-LICONSA-2019-004448

PATIENT
  Age: 76 Year
  Sex: Male
  Weight: 69 kg

DRUGS (48)
  1. NITROGLYCERIN [Suspect]
     Active Substance: NITROGLYCERIN
     Dosage: UNK
  2. HYDROCORTISONE SODIUM SUCCINATE [Suspect]
     Active Substance: HYDROCORTISONE SODIUM SUCCINATE
     Dosage: 50 MG, 3X/DAY
     Route: 042
     Dates: start: 20180201
  3. HYDROCORTISONE SODIUM SUCCINATE [Suspect]
     Active Substance: HYDROCORTISONE SODIUM SUCCINATE
     Dosage: 150 MG, 3X/DAY
     Route: 042
     Dates: start: 20180201
  4. NITROGLYCERIN [Suspect]
     Active Substance: NITROGLYCERIN
     Dosage: UNK
  5. DOXYCYCLINE HYCLATE [Suspect]
     Active Substance: DOXYCYCLINE HYCLATE
     Dosage: 1 DF
  6. CEFUROXIME [Suspect]
     Active Substance: CEFUROXIME
     Indication: Pneumonia
     Dosage: UNK
     Dates: start: 20180131
  7. BISOPROLOL [Suspect]
     Active Substance: BISOPROLOL
     Dosage: UNK
     Dates: start: 20180131
  8. DEXTROSE [Suspect]
     Active Substance: DEXTROSE
     Dosage: UNK
  9. OMEPRAZOLE [Suspect]
     Active Substance: OMEPRAZOLE
     Indication: Duodenal ulcer
     Dosage: 20 MG, MONTHLY
     Route: 048
  10. OMEPRAZOLE [Suspect]
     Active Substance: OMEPRAZOLE
     Dosage: 20 MG, DAILY
     Route: 048
  11. CLARITHROMYCIN [Interacting]
     Active Substance: CLARITHROMYCIN
     Indication: Pneumonia
     Dosage: 500 MG, 2X/DAY
     Route: 042
     Dates: start: 20180127, end: 20180131
  12. CLARITHROMYCIN [Interacting]
     Active Substance: CLARITHROMYCIN
     Indication: Lower respiratory tract infection
     Dosage: 9000 MG
     Route: 042
  13. CLARITHROMYCIN [Interacting]
     Active Substance: CLARITHROMYCIN
     Indication: Mediastinitis
  14. ENVARSUS XR [Suspect]
     Active Substance: TACROLIMUS
     Indication: Renal transplant
     Dosage: 1.5 MG, 2X/DAY
     Route: 048
     Dates: start: 20180127, end: 20180131
  15. ENVARSUS XR [Suspect]
     Active Substance: TACROLIMUS
     Indication: Prophylaxis against transplant rejection
     Dosage: 27 MG
  16. ENVARSUS XR [Suspect]
     Active Substance: TACROLIMUS
     Dosage: 3 MG, 1X/DAY
     Dates: start: 20180127, end: 20180131
  17. TACROLIMUS [Interacting]
     Active Substance: TACROLIMUS
     Indication: Renal transplant
     Dosage: 15 MG, 2X/DAY
     Route: 048
  18. TACROLIMUS [Interacting]
     Active Substance: TACROLIMUS
     Indication: Prophylaxis against transplant rejection
     Dosage: 1.5 MG, 2X/DAY
     Route: 048
     Dates: start: 20100127, end: 20180130
  19. TACROLIMUS [Interacting]
     Active Substance: TACROLIMUS
     Dosage: 1.5 MG
     Route: 048
     Dates: start: 20180127
  20. TACROLIMUS [Interacting]
     Active Substance: TACROLIMUS
     Dosage: 2 MG, 2X/DAY
     Route: 048
     Dates: start: 20180128
  21. TACROLIMUS [Interacting]
     Active Substance: TACROLIMUS
     Dosage: 4 MG, 1X/DAY
     Route: 048
     Dates: start: 20180128
  22. TACROLIMUS [Interacting]
     Active Substance: TACROLIMUS
     Indication: Renal transplant
     Dosage: 30 MG, DAILY
     Route: 048
  23. TACROLIMUS [Interacting]
     Active Substance: TACROLIMUS
     Dosage: 3 MG DAILY
     Dates: start: 20180127, end: 20180131
  24. SENNOSIDES A AND B [Suspect]
     Active Substance: SENNOSIDES A AND B
     Dosage: UNK
     Route: 048
  25. PREDNISOLONE [Concomitant]
     Active Substance: PREDNISOLONE
     Dosage: 5 MG, DAILY
     Route: 048
  26. PREDNISOLONE [Concomitant]
     Active Substance: PREDNISOLONE
     Dosage: 10 MG, DAILY
     Route: 048
     Dates: start: 20180127, end: 20180206
  27. EPLERENONE [Concomitant]
     Active Substance: EPLERENONE
     Dosage: 25 MG, DAILY
     Route: 048
     Dates: end: 20180130
  28. EPLERENONE [Concomitant]
     Active Substance: EPLERENONE
     Dosage: 25 MG, MONTHLY
     Route: 048
  29. GLICLAZIDE [Concomitant]
     Active Substance: GLICLAZIDE
     Dosage: 40 MG, 1X/DAY MORNING
     Route: 048
  30. FUROSEMIDE [Concomitant]
     Active Substance: FUROSEMIDE
     Dosage: 80 MG MORNING, 40 MG 12 P.M.
     Route: 048
  31. FUROSEMIDE [Concomitant]
     Active Substance: FUROSEMIDE
     Dosage: 40 MG, 1X/DAY(12PM)
     Route: 048
  32. FUROSEMIDE [Concomitant]
     Active Substance: FUROSEMIDE
     Dosage: 80 MG, 1X/DAY MORNING
     Route: 048
     Dates: end: 20180130
  33. FUROSEMIDE [Concomitant]
     Active Substance: FUROSEMIDE
     Dosage: 120 MG, DAILY
  34. ALFACALCIDOL [Concomitant]
     Active Substance: ALFACALCIDOL
     Dosage: 500 NG, 1X/DAY O/A
     Route: 048
  35. CHOLECALCIFEROL [Concomitant]
     Active Substance: CHOLECALCIFEROL
     Dosage: 20 NG, 1X/DAY MORNING
     Route: 048
  36. CHOLECALCIFEROL [Concomitant]
     Active Substance: CHOLECALCIFEROL
     Dosage: 20 NG, MONTHLY
  37. SENNA LEAF [Concomitant]
     Active Substance: SENNA LEAF
     Dosage: 15 MG 1X/DAY
     Route: 048
  38. BETAHISTINE [Concomitant]
     Active Substance: BETAHISTINE
     Dosage: 8 MG, MONTHLY
     Route: 048
  39. BETAHISTINE [Concomitant]
     Active Substance: BETAHISTINE
     Dosage: 8 MG, DAILY MORNING
  40. ALBUTEROL [Concomitant]
     Active Substance: ALBUTEROL
     Dosage: UNK
  41. ALLOPURINOL [Concomitant]
     Active Substance: ALLOPURINOL
     Dosage: 100 MG, 1X/DAY
     Route: 048
  42. GLUCAGON [Concomitant]
     Active Substance: GLUCAGON
     Dosage: UNK
     Route: 030
     Dates: start: 20180130
  43. HYDROCORTISONE [Concomitant]
     Active Substance: HYDROCORTISONE
     Dosage: 50 MG, 3X/DAY
     Route: 042
     Dates: start: 20180201
  44. HYDROCORTISONE [Concomitant]
     Active Substance: HYDROCORTISONE
     Dosage: 50, 3X/DAY
     Route: 042
     Dates: start: 20180201
  45. HYDROCORTISONE [Concomitant]
     Active Substance: HYDROCORTISONE
     Dosage: 50, 3X/DAY
     Route: 042
  46. GLUCOGEL [Concomitant]
     Dosage: UNK
     Dates: start: 20180130
  47. NITROGLYCERIN [Concomitant]
     Active Substance: NITROGLYCERIN
     Dosage: 50 MG, 3X/DAY
     Dates: start: 20180201
  48. DEXTROSE [Concomitant]
     Active Substance: DEXTROSE
     Dosage: UNK
     Dates: start: 20180130

REACTIONS (34)
  - Oesophageal perforation [Fatal]
  - Oesophageal carcinoma [Fatal]
  - Ascites [Fatal]
  - Myocardial ischaemia [Fatal]
  - Drug interaction [Fatal]
  - Acute kidney injury [Fatal]
  - Cardiac failure congestive [Fatal]
  - Immunosuppressant drug level increased [Fatal]
  - Pneumonia [Fatal]
  - Sepsis [Fatal]
  - Dyspnoea [Fatal]
  - Lower respiratory tract infection [Fatal]
  - Multimorbidity [Fatal]
  - Toxicity to various agents [Fatal]
  - Swelling [Fatal]
  - Labelled drug-drug interaction medication error [Fatal]
  - Pleural effusion [Fatal]
  - Pyrexia [Fatal]
  - Haemoptysis [Fatal]
  - Cardiomegaly [Fatal]
  - Transplant failure [Fatal]
  - Hypoglycaemia [Fatal]
  - Dysphagia [Fatal]
  - Superinfection [Fatal]
  - Rash [Fatal]
  - Rales [Fatal]
  - Soft tissue mass [Fatal]
  - Lung consolidation [Fatal]
  - Inflammatory marker increased [Fatal]
  - Productive cough [Fatal]
  - Drug level increased [Fatal]
  - Cough [Fatal]
  - Malaise [Fatal]
  - Renal impairment [Fatal]

NARRATIVE: CASE EVENT DATE: 20180118
